FAERS Safety Report 16568690 (Version 1)
Quarter: 2019Q3

REPORT INFORMATION
  Report Type: Spontaneous
  Country: DE (occurrence: DE)
  Receive Date: 20190713
  Receipt Date: 20190713
  Transmission Date: 20191004
  Serious: Yes (Death, Life-Threatening, Hospitalization)
  Sender: FDA-Public Use
  Company Number: DE-AMGEN-DEUSP2019110723

PATIENT
  Age: 63 Year
  Sex: Male
  Weight: 73 kg

DRUGS (15)
  1. METAMIZOLE [Concomitant]
     Active Substance: METAMIZOLE
     Dosage: 30 GTT DROPS, AS NECESSARY
     Route: 048
  2. PREGABALIN. [Concomitant]
     Active Substance: PREGABALIN
     Dosage: 75 MILLIGRAM, 1-0-1-0, TABLETS
     Route: 048
  3. COTRIM FORTE [Concomitant]
     Active Substance: SULFAMETHOXAZOLE\TRIMETHOPRIM
     Dosage: 960 MILLIGRAM, 1-0-0-0, TABLETS
     Route: 048
  4. ZOMETA [Concomitant]
     Active Substance: ZOLEDRONIC ACID
     Dosage: 4 MILLIGRAM, Q4WK
     Route: 042
  5. TRAMADOL. [Concomitant]
     Active Substance: TRAMADOL
     Dosage: 20 MILLIGRAM, AS NECESSARY
     Route: 048
  6. LEVOTHYROXINE SODIUM. [Concomitant]
     Active Substance: LEVOTHYROXINE SODIUM
     Dosage: 125 MICROGRAM 1-0-0-0, TABLETS
     Route: 048
  7. VORICONAZOL [Concomitant]
     Active Substance: VORICONAZOLE
     Dosage: 200 MILLIGRAM, 1-0-1-0, TABLETS
     Route: 048
  8. SIMVASTATIN. [Concomitant]
     Active Substance: SIMVASTATIN
     Dosage: 20 MILLIGRAM, 0-0-1-0, TABLETS
     Route: 048
  9. ACICLOVIR [Concomitant]
     Active Substance: ACYCLOVIR
     Dosage: 400 MILLIGRAM, 1-0-1-0, TABLETS
     Route: 048
  10. DEXAMETHASONE. [Suspect]
     Active Substance: DEXAMETHASONE
     Indication: PLASMA CELL MYELOMA
     Dosage: 40 MILLIGRAM, 1-0-0-0 ACCORDING TO SCHEDULE
     Route: 048
  11. PANTOPRAZOLE [Concomitant]
     Active Substance: PANTOPRAZOLE
     Dosage: 40 MILLIGRAM, 1-0-0-0, TABLETS
     Route: 048
  12. TILIDIN [Concomitant]
     Active Substance: NALOXONE HYDROCHLORIDE\TILIDINE HYDROCHLORIDE
     Dosage: 50 MILLIGRAM, AS NECESSARY UP TO TWICE A DAY
     Route: 048
  13. CARFILZOMIB [Suspect]
     Active Substance: CARFILZOMIB
     Indication: PLASMA CELL MYELOMA
     Dosage: MG/M2, ACCORDING TO SCHEDULE
     Route: 042
  14. REVLIMID [Suspect]
     Active Substance: LENALIDOMIDE
     Indication: PLASMA CELL MYELOMA
     Dosage: 25 MILLIGRAM, 1-0-0-0 ACCORDING TO SCHEDULE
     Route: 048
  15. VIGANTOLETTEN [Concomitant]
     Active Substance: CHOLECALCIFEROL
     Dosage: 1000 IE, 1-0-0-0, TABLETS
     Route: 048

REACTIONS (2)
  - General physical health deterioration [Unknown]
  - Pyrexia [Unknown]
